FAERS Safety Report 13733006 (Version 1)
Quarter: 2017Q3

REPORT INFORMATION
  Report Type: Spontaneous
  Country: US (occurrence: US)
  Receive Date: 20170707
  Receipt Date: 20170707
  Transmission Date: 20171127
  Serious: No
  Sender: FDA-Public Use
  Company Number: US-ROCHE-1400844

PATIENT
  Age: 86 Year
  Sex: Female
  Weight: 52.8 kg

DRUGS (16)
  1. GAZYVA [Suspect]
     Active Substance: OBINUTUZUMAB
     Route: 042
     Dates: start: 20140523
  2. TYLENOL [Concomitant]
     Active Substance: ACETAMINOPHEN
     Indication: PREMEDICATION
     Route: 048
     Dates: start: 20140507
  3. ZYRTEC [Concomitant]
     Active Substance: CETIRIZINE HYDROCHLORIDE
     Indication: PREMEDICATION
     Route: 048
     Dates: start: 20140507
  4. CYANOCOBALAMIN. [Concomitant]
     Active Substance: CYANOCOBALAMIN
     Route: 048
  5. GAZYVA [Suspect]
     Active Substance: OBINUTUZUMAB
     Route: 042
     Dates: start: 20140514
  6. LIDEX [Concomitant]
     Active Substance: FLUOCINONIDE
     Route: 065
  7. ANUSOL-HC SUPPOSITORY (UNITED STATES) [Concomitant]
     Dosage: AS DIRECTED
     Route: 065
  8. TRIAMCINOLONE [Concomitant]
     Active Substance: TRIAMCINOLONE
     Dosage: AS DIRECTED, APPLY THIN LAYER TO AFFECTED AREA
     Route: 065
  9. GAZYVA [Suspect]
     Active Substance: OBINUTUZUMAB
     Route: 042
     Dates: start: 20140604
  10. ZYLOPRIM [Concomitant]
     Active Substance: ALLOPURINOL
     Route: 065
  11. ALLOPURINOL. [Concomitant]
     Active Substance: ALLOPURINOL
     Dosage: STARTED 3 DAYS PRIOR TO TREATMENT
     Route: 048
     Dates: start: 20140507
  12. SYNTHROID [Concomitant]
     Active Substance: LEVOTHYROXINE SODIUM
     Route: 048
  13. ACYCLOVIR. [Concomitant]
     Active Substance: ACYCLOVIR
     Route: 065
  14. GAZYVA [Suspect]
     Active Substance: OBINUTUZUMAB
     Route: 042
     Dates: start: 20140508
  15. PEPCID [Concomitant]
     Active Substance: FAMOTIDINE
     Indication: INFUSION RELATED REACTION
     Route: 042
     Dates: start: 20140507, end: 20140507
  16. GAZYVA [Suspect]
     Active Substance: OBINUTUZUMAB
     Indication: CHRONIC LYMPHOCYTIC LEUKAEMIA
     Route: 042
     Dates: end: 20140507

REACTIONS (11)
  - Flushing [Unknown]
  - Feeling hot [Unknown]
  - Pyrexia [Unknown]
  - Nausea [Unknown]
  - Dyspnoea [Unknown]
  - Papule [Recovering/Resolving]
  - Inflammation [Unknown]
  - Neoplasm [Unknown]
  - Chest discomfort [Unknown]
  - Rash [Recovering/Resolving]
  - Nodule [Unknown]

NARRATIVE: CASE EVENT DATE: 20140509
